FAERS Safety Report 12396046 (Version 3)
Quarter: 2019Q1

REPORT INFORMATION
  Report Type: Spontaneous
  Country: CN (occurrence: CN)
  Receive Date: 20160524
  Receipt Date: 20190217
  Transmission Date: 20190417
  Serious: Yes (Death)
  Sender: FDA-Public Use
  Company Number: CN-JNJFOC-20160517330

PATIENT
  Age: 22 Year
  Sex: Male

DRUGS (2)
  1. TYLENOL 8HR [Suspect]
     Active Substance: ACETAMINOPHEN
     Route: 048
  2. TYLENOL 8HR [Suspect]
     Active Substance: ACETAMINOPHEN
     Indication: PYREXIA
     Dosage: 7.8 G IN TOTAL
     Route: 048
     Dates: start: 201405

REACTIONS (6)
  - Drug ineffective [Unknown]
  - Acute hepatic failure [Fatal]
  - Haemorrhage [Fatal]
  - Multiple organ dysfunction syndrome [Fatal]
  - Hepatic necrosis [Fatal]
  - Overdose [Fatal]

NARRATIVE: CASE EVENT DATE: 2014
